FAERS Safety Report 7258172-X (Version None)
Quarter: 2011Q1

REPORT INFORMATION
  Report Type: 
  Country: None (occurrence: None)
  Receive Date: 20110129
  Receipt Date: 20100712
  Transmission Date: 20110831
  Serious: No
  Sender: FDA-Public Use
  Company Number: US-ABBOTT-10P-163-0657698-00

PATIENT
  Sex: Female
  Weight: 66.284 kg

DRUGS (5)
  1. ASACOL [Concomitant]
     Indication: COLITIS ULCERATIVE
  2. VITAMIN A AND D [Concomitant]
     Indication: PRODUCT USED FOR UNKNOWN INDICATION
  3. MULTI-VITAMIN [Concomitant]
     Indication: PRODUCT USED FOR UNKNOWN INDICATION
  4. VITAMIN B [Concomitant]
     Indication: PRODUCT USED FOR UNKNOWN INDICATION
  5. HUMIRA [Suspect]
     Indication: SPONDYLITIS
     Dates: start: 20080101

REACTIONS (4)
  - SINUSITIS [None]
  - ACROCHORDON [None]
  - HEADACHE [None]
  - SKIN PAPILLOMA [None]
